FAERS Safety Report 8713143 (Version 2)
Quarter: 2012Q4

REPORT INFORMATION
  Report Type: 
  Country: US (occurrence: US)
  Receive Date: 20120808
  Receipt Date: 20120830
  Transmission Date: 20130627
  Serious: Yes (Hospitalization)
  Sender: FDA-Public Use
  Company Number: US-PFIZER INC-2012189128

PATIENT
  Age: 70 Year
  Sex: Female
  Weight: 83.9 kg

DRUGS (19)
  1. INLYTA [Suspect]
     Indication: METASTATIC RENAL CELL CARCINOMA
     Dosage: 5 mg, 2x/day
     Route: 048
     Dates: start: 20120706, end: 20120723
  2. GEMFIBROZIL [Concomitant]
     Dosage: 600 mg, 2x/day
     Route: 048
  3. ASPIRIN [Concomitant]
     Dosage: 81 mg, 1x/day
     Route: 048
  4. ACTOS [Concomitant]
     Dosage: 30 mg, 1x/day
     Route: 048
  5. OS- CAL 500 PLUS VITAMIN D [Concomitant]
     Dosage: 2x/day
  6. FISH OIL [Concomitant]
  7. OMEGA 3 [Concomitant]
     Dosage: 1000 mg, 2x/day
     Route: 048
  8. LISINOPRIL [Concomitant]
     Dosage: 40 mg, 1x/day
     Route: 048
  9. AMLODIPINE [Concomitant]
     Dosage: 5 mg, 1x/day
     Route: 048
  10. VENLAFAXINE [Concomitant]
     Dosage: 37.5 mg, 1x/day
     Route: 048
  11. SYNTHROID [Concomitant]
     Dosage: 75 ug, 1x/day
     Route: 048
  12. IRON (FERROUS GLUCONATE) [Concomitant]
     Dosage: 324 mg, 2x/day
     Route: 048
  13. LOVASTATIN [Concomitant]
     Dosage: 40 mg, 1x/day
     Route: 048
  14. IBUPROFEN [Concomitant]
     Dosage: UNK
  15. REMERON [Concomitant]
     Dosage: 30 mg, 1x/day at bedtime
  16. LOMOTIL [Concomitant]
     Indication: DIARRHOEA
     Dosage: UNK
  17. VALIUM [Concomitant]
     Indication: ANXIETY
     Dosage: UNK
  18. ZOFRAN [Concomitant]
     Indication: NAUSEA
     Dosage: UNK
  19. ATIVAN [Concomitant]
     Dosage: 1 mg, Q6H as needed
     Route: 048

REACTIONS (4)
  - Convulsion [Unknown]
  - Posterior reversible encephalopathy syndrome [Unknown]
  - Hypertension [Unknown]
  - Nightmare [Unknown]
